FAERS Safety Report 21350017 (Version 1)
Quarter: 2022Q3

REPORT INFORMATION
  Report Type: Spontaneous
  Country: CN (occurrence: CN)
  Receive Date: 20220919
  Receipt Date: 20220919
  Transmission Date: 20221027
  Serious: Yes (Other)
  Sender: FDA-Public Use
  Company Number: None

PATIENT
  Age: 62 Year
  Sex: Female
  Weight: 52 kg

DRUGS (4)
  1. CYCLOPHOSPHAMIDE [Suspect]
     Active Substance: CYCLOPHOSPHAMIDE
     Indication: Breast cancer female
     Dosage: 0.9 G, QD (DILUTED WITH 0.9% SODIUM CHLORIDE SOLUTION 100ML)
     Route: 041
     Dates: start: 20220825, end: 20220825
  2. SODIUM CHLORIDE [Suspect]
     Active Substance: SODIUM CHLORIDE
     Indication: Medication dilution
     Dosage: 100 ML, QD 9DILUTED WITH CYCLOPHOSPHAMIDE FOR INJECTION 0.9G)
     Route: 041
     Dates: start: 20220825, end: 20220825
  3. SODIUM CHLORIDE [Suspect]
     Active Substance: SODIUM CHLORIDE
     Dosage: 250 ML, QD (DILUTED WITH DOCETAXEL INJECTION 115MG)
     Route: 041
     Dates: start: 20220825, end: 20220825
  4. DOCETAXEL [Suspect]
     Active Substance: DOCETAXEL
     Indication: Breast cancer female
     Dosage: 115 MG, QD (DILUTED WITH 0.9% SODIUM CHLORIDE SOLUTION 250ML)
     Route: 041
     Dates: start: 20220825, end: 20220825

REACTIONS (1)
  - Myelosuppression [Recovering/Resolving]

NARRATIVE: CASE EVENT DATE: 20220901
